FAERS Safety Report 7029999-4 (Version None)
Quarter: 2010Q4

REPORT INFORMATION
  Report Type: 
  Country: None (occurrence: None)
  Receive Date: 20101006
  Receipt Date: 20100922
  Transmission Date: 20110411
  Serious: Yes (Hospitalization)
  Sender: FDA-Public Use
  Company Number: PHHY2010CL63828

PATIENT
  Age: 64 Year
  Sex: Female

DRUGS (1)
  1. EXFORGE [Suspect]
     Indication: HYPERTENSION
     Dosage: 160 / 10 MG, 1 TABLET PER DAY

REACTIONS (2)
  - ANKLE FRACTURE [None]
  - ANKLE OPERATION [None]
